FAERS Safety Report 10378169 (Version 1)
Quarter: 2014Q1

REPORT INFORMATION
  Report Type: Spontaneous
  Country: US (occurrence: None)
  Receive Date: 20140306
  Receipt Date: 20140306
  Transmission Date: 20141002
  Serious: Yes (Other)
  Sender: FDA-Public Use
  Company Number: 163-21880-13013317

PATIENT
  Age: 41 Year
  Sex: Male

DRUGS (8)
  1. REVLIMID (LENALIDOMIDE) (CAPSULES) [Suspect]
     Indication: AMYLOIDOSIS
     Dosage: 25 MG, 21 IN 21 D, PO
     Route: 048
     Dates: start: 20130107
  2. ALDACTONE (SPIRONOLACTONE) [Concomitant]
  3. ASPIRIN ADULT LOW STRENGTH (ACETYLSALICYLIC ACID) [Concomitant]
  4. COREG (CARVEDILOL) [Concomitant]
  5. COZAAR (LOSARTAN POTASSIUM) [Concomitant]
  6. DILANTIN (PHENYTOIN SODIUM) [Concomitant]
  7. LASIX (FUROSEMIDE) [Concomitant]
  8. LIPITOR (ATORVASTATIN) [Concomitant]

REACTIONS (1)
  - Syncope [None]
